FAERS Safety Report 6202833-8 (Version None)
Quarter: 2009Q2

REPORT INFORMATION
  Report Type: 
  Country: None (occurrence: None)
  Receive Date: 20090526
  Receipt Date: 20090518
  Transmission Date: 20091009
  Serious: Yes (Death)
  Sender: FDA-Public Use
  Company Number: GR-GENENTECH-250107

PATIENT

DRUGS (3)
  1. MABTHERA [Suspect]
     Indication: WALDENSTROM'S MACROGLOBULINAEMIA
     Dosage: 375 MG/M2, Q21D
     Route: 042
  2. DEXAMETHASONE 4MG TAB [Concomitant]
     Indication: WALDENSTROM'S MACROGLOBULINAEMIA
     Dosage: 20 MG, Q21D
     Route: 042
  3. CYCLOPHOSPHAMIDE [Concomitant]
     Indication: WALDENSTROM'S MACROGLOBULINAEMIA
     Dosage: 100 MG/M2, BID
     Route: 048

REACTIONS (1)
  - INTERSTITIAL LUNG DISEASE [None]
